FAERS Safety Report 5951528-4 (Version None)
Quarter: 2008Q4

REPORT INFORMATION
  Report Type: 
  Country: None (occurrence: None)
  Receive Date: 20081113
  Receipt Date: 20081104
  Transmission Date: 20090506
  Serious: Yes (Life-Threatening, Other)
  Sender: FDA-Public Use
  Company Number: US-PURDUE-USA_2008_0035755

PATIENT
  Age: 84 Year
  Sex: Female
  Weight: 67 kg

DRUGS (6)
  1. DILAUDID-HP [Suspect]
     Indication: SEDATIVE THERAPY
     Dosage: .5 MG, SINGLE
     Route: 042
     Dates: start: 20081006, end: 20081006
  2. CANGRELOR VS PLACEBO (CODE NOT BROKEN) INJECTION [Suspect]
     Indication: PERCUTANEOUS CORONARY INTERVENTION
     Dosage: UNK ML, SEE TEXT
     Route: 042
     Dates: start: 20081006, end: 20081006
  3. CLOPIDOGREL [Suspect]
     Indication: PERCUTANEOUS CORONARY INTERVENTION
     Route: 048
  4. VERSED [Suspect]
     Indication: SEDATIVE THERAPY
     Dosage: .5 MG, SINGLE
     Route: 042
     Dates: start: 20081006, end: 20081006
  5. ASPIRIN [Concomitant]
  6. BIVALIRUDIN [Concomitant]

REACTIONS (7)
  - BRADYCARDIA [None]
  - HYPOTENSION [None]
  - MENTAL STATUS CHANGES [None]
  - RESPIRATORY DEPRESSION [None]
  - UNRESPONSIVE TO STIMULI [None]
  - VENTRICULAR FIBRILLATION [None]
  - VENTRICULAR TACHYCARDIA [None]
